FAERS Safety Report 5642291-5 (Version None)
Quarter: 2008Q1

REPORT INFORMATION
  Report Type: 
  Country: None (occurrence: None)
  Receive Date: 20080226
  Receipt Date: 20080211
  Transmission Date: 20080703
  Serious: Yes (Hospitalization, Other)
  Sender: FDA-Public Use
  Company Number: TPG2008A00094

PATIENT
  Age: 70 Year
  Sex: Female

DRUGS (7)
  1. ACTOS [Suspect]
     Indication: TYPE 2 DIABETES MELLITUS
     Dosage: 15 MG (15 MG, 1 IN 1 D) PER ORAL
     Route: 048
     Dates: start: 20050901, end: 20070401
  2. VERAPAMIL [Concomitant]
  3. CANDESARTAN CILEXETIL [Concomitant]
  4. HYDROCHLOROTHIAZIDE [Concomitant]
  5. ACETYLSALICYLIC ACID SRT [Concomitant]
  6. CALCIUM (CALCIUM) [Concomitant]
  7. VITAMIN D [Concomitant]

REACTIONS (12)
  - CHRONIC MYELOMONOCYTIC LEUKAEMIA [None]
  - DISEASE RECURRENCE [None]
  - DYSPNOEA [None]
  - HERPES ZOSTER [None]
  - NECROSIS [None]
  - OEDEMA PERIPHERAL [None]
  - RIGHT VENTRICULAR FAILURE [None]
  - SCLERITIS [None]
  - SPINAL FRACTURE [None]
  - TENDON RUPTURE [None]
  - THROMBOCYTHAEMIA [None]
  - WEGENER'S GRANULOMATOSIS [None]
